FAERS Safety Report 8567601-0 (Version None)
Quarter: 2012Q3

REPORT INFORMATION
  Report Type: 
  Country: None (occurrence: None)
  Receive Date: 20120803
  Receipt Date: 20120725
  Transmission Date: 20120928
  Serious: Yes (Hospitalization, Other)
  Sender: FDA-Public Use
  Company Number: US-ACTELION-A-US2012-60491

PATIENT
  Age: 72 Year
  Sex: Female

DRUGS (6)
  1. PLAVIX [Concomitant]
  2. ADCIRCA [Concomitant]
  3. OXYGEN [Concomitant]
  4. INSULIN [Concomitant]
  5. ASPIRIN [Concomitant]
  6. TRACLEER [Suspect]
     Indication: PULMONARY ARTERIAL HYPERTENSION
     Dosage: UNK
     Route: 048
     Dates: start: 20110506

REACTIONS (6)
  - TRANSFUSION [None]
  - HIATUS HERNIA [None]
  - GASTROINTESTINAL HAEMORRHAGE [None]
  - GASTRIC HAEMORRHAGE [None]
  - PULMONARY OEDEMA [None]
  - DYSPNOEA [None]
